FAERS Safety Report 25338431 (Version 2)
Quarter: 2025Q2

REPORT INFORMATION
  Report Type: Spontaneous
  Country: US (occurrence: US)
  Receive Date: 20250520
  Receipt Date: 20250528
  Transmission Date: 20250716
  Serious: No
  Sender: SANOFI AVENTIS
  Company Number: US-SA-2025SA143688

PATIENT
  Age: 41 Year
  Sex: Male

DRUGS (1)
  1. TZIELD [Suspect]
     Active Substance: TEPLIZUMAB-MZWV
     Dosage: 2163 UG, QD
     Dates: start: 20250507, end: 20250520

REACTIONS (6)
  - Tachycardia [Unknown]
  - Heart rate increased [Unknown]
  - Dyspnoea [Unknown]
  - Dehydration [Unknown]
  - Nausea [Unknown]
  - Rash [Unknown]

NARRATIVE: CASE EVENT DATE: 20250501
